FAERS Safety Report 15307286 (Version 1)
Quarter: 2020Q3

REPORT INFORMATION
  Report Type: Spontaneous
  Country: DE (occurrence: DE)
  Receive Date: 20180822
  Receipt Date: 20180822
  Transmission Date: 20201104
  Serious: Yes (Other)
  Sender: FDA-Public Use
  Company Number: IND-DE-009507513-1808DEU007133

PATIENT
  Age: 58 Year
  Sex: Male
  Weight: 73 kg

DRUGS (4)
  1. METOPROLOL. [Concomitant]
     Active Substance: METOPROLOL
     Indication: ARRHYTHMIA
     Dosage: 95 MG, QD
     Route: 048
     Dates: start: 2015
  2. METOPROLOL. [Concomitant]
     Active Substance: METOPROLOL
     Indication: PULSE ABNORMAL
  3. ARCOXIA [Suspect]
     Active Substance: ETORICOXIB
     Indication: JOINT SWELLING
     Dosage: 90 MG, QD
     Route: 048
     Dates: start: 20180714
  4. IBUPROFEN AL [Concomitant]
     Active Substance: IBUPROFEN
     Indication: OSTEONECROSIS
     Dosage: 600 MG, QD
     Route: 048
     Dates: start: 201701

REACTIONS (5)
  - Eye contusion [Not Recovered/Not Resolved]
  - Fall [Not Recovered/Not Resolved]
  - Loss of consciousness [Not Recovered/Not Resolved]
  - Face injury [Not Recovered/Not Resolved]
  - Hyperhidrosis [Not Recovered/Not Resolved]

NARRATIVE: CASE EVENT DATE: 20180714
